FAERS Safety Report 5007065-7 (Version None)
Quarter: 2006Q1

REPORT INFORMATION
  Report Type: 
  Country: None (occurrence: None)
  Receive Date: 20060320
  Receipt Date: 20050727
  Transmission Date: 20060701
  Serious: Yes (Other)
  Sender: FDA-Public Use
  Company Number: 2005-07-1893

PATIENT
  Age: 43 Year
  Sex: Female
  Weight: 69.8539 kg

DRUGS (3)
  1. REBETOL [Suspect]
     Dosage: ORAL
     Route: 048
     Dates: start: 20050501
  2. PEG-INTRON [Suspect]
     Dates: start: 20050501
  3. PROCRIT [Concomitant]

REACTIONS (1)
  - PANCYTOPENIA [None]
